FAERS Safety Report 23986466 (Version 2)
Quarter: 2024Q3

REPORT INFORMATION
  Report Type: Spontaneous
  Country: JP (occurrence: JP)
  Receive Date: 20240618
  Receipt Date: 20240819
  Transmission Date: 20241016
  Serious: No
  Sender: PFIZER
  Company Number: JP-PFIZER INC-PV202400075589

PATIENT
  Sex: Female

DRUGS (1)
  1. ENBREL [Suspect]
     Active Substance: BENZYL ALCOHOL\ETANERCEPT
     Dosage: UNK
     Route: 058
     Dates: start: 202404

REACTIONS (6)
  - Injection site erythema [Not Recovered/Not Resolved]
  - Injection site pruritus [Recovered/Resolved]
  - Injection site warmth [Unknown]
  - Injection site swelling [Unknown]
  - Injection site bruising [Unknown]
  - Device malfunction [Unknown]

NARRATIVE: CASE EVENT DATE: 20240101
